FAERS Safety Report 6936416-9 (Version None)
Quarter: 2010Q3

REPORT INFORMATION
  Report Type: 
  Country: None (occurrence: None)
  Receive Date: 20100818
  Receipt Date: 20100805
  Transmission Date: 20110219
  Serious: Yes (Hospitalization)
  Sender: FDA-Public Use
  Company Number: US-JNJFOC-20100802067

PATIENT
  Age: 45 Year
  Sex: Male
  Weight: 99.7913 kg

DRUGS (2)
  1. DACOGEN [Suspect]
     Indication: MYELODYSPLASTIC SYNDROME
     Dosage: HALF DOSE FOR FIVE DAYS INTRAVENOUS
     Route: 042
     Dates: start: 20091101
  2. COMPAZINE (PROCHLORPERAZINE EDISYLATE) UNSPECIFIED [Concomitant]

REACTIONS (4)
  - ASTHENIA [None]
  - FEBRILE NEUTROPENIA [None]
  - PNEUMONIA [None]
  - PULMONARY FIBROSIS [None]
